FAERS Safety Report 7074411-2 (Version None)
Quarter: 2010Q4

REPORT INFORMATION
  Report Type: 
  Country: None (occurrence: None)
  Receive Date: 20101021
  Receipt Date: 20101005
  Transmission Date: 20110411
  Serious: Yes (Other)
  Sender: FDA-Public Use
  Company Number: 019893

PATIENT
  Sex: Female
  Weight: 52.2 kg

DRUGS (5)
  1. CIMZIA [Suspect]
     Indication: CROHN'S DISEASE
     Dosage: (400 MG 1X/2 WEEKS SUBCUTANEOUS)
     Route: 058
     Dates: start: 20100813, end: 20100910
  2. CODEINE [Concomitant]
  3. ACTONEL [Concomitant]
  4. LOMOTIL /00034001/ [Concomitant]
  5. VITAMIN B12 NOS [Concomitant]

REACTIONS (5)
  - BLINDNESS UNILATERAL [None]
  - CONDITION AGGRAVATED [None]
  - MACULAR DEGENERATION [None]
  - MYDRIASIS [None]
  - VISION BLURRED [None]
